FAERS Safety Report 23879279 (Version 1)
Quarter: 2024Q2

REPORT INFORMATION
  Report Type: Spontaneous
  Country: US (occurrence: US)
  Receive Date: 20240521
  Receipt Date: 20240521
  Transmission Date: 20240716
  Serious: Yes (Hospitalization)
  Sender: FDA-Public Use
  Company Number: US-DENDREON PHARMACEUTICAL LLC-2023DEN000235

PATIENT

DRUGS (18)
  1. PROVENGE [Suspect]
     Active Substance: SIPULEUCEL-T
     Indication: Prostate cancer metastatic
     Dosage: DOSE 1
     Route: 042
     Dates: start: 20220627, end: 20220627
  2. PROVENGE [Suspect]
     Active Substance: SIPULEUCEL-T
     Dosage: DOSE 2
     Route: 042
     Dates: start: 20220711, end: 20220711
  3. PROVENGE [Suspect]
     Active Substance: SIPULEUCEL-T
     Dosage: 250 ML
     Route: 042
     Dates: start: 20220725, end: 20220725
  4. ABIRATERONE [Concomitant]
     Active Substance: ABIRATERONE
     Indication: Prostate cancer metastatic
     Dosage: 250 MILLIGRAM, QD
     Route: 048
  5. LEUPROLIDE ACETATE [Concomitant]
     Active Substance: ISOPROPYL ALCOHOL\LEUPROLIDE ACETATE
     Indication: Prostate cancer metastatic
     Dosage: UNK, Q 3 MONTHS
     Route: 030
  6. PREDNISONE [Concomitant]
     Active Substance: PREDNISONE
     Indication: Product used for unknown indication
     Dosage: 5 MILLIGRAM, QD
     Route: 048
  7. CARVEDILOL [Concomitant]
     Active Substance: CARVEDILOL
     Indication: Hypertension
     Dosage: 12.5 MILLIGRAM, BID
     Route: 048
  8. LISINOPRIL [Concomitant]
     Active Substance: LISINOPRIL
     Indication: Hypertension
     Dosage: 5 MILLIGRAM, Q HS
     Route: 048
  9. FUROSEMIDE [Concomitant]
     Active Substance: FUROSEMIDE
     Indication: Hypertension
     Dosage: 20 MILLIGRAM, QD
     Route: 048
  10. SPIRONOLACTONE [Concomitant]
     Active Substance: SPIRONOLACTONE
     Indication: Hypertension
     Dosage: 25 MILLIGRAM, QD
     Route: 048
  11. ROSUVASTATIN [Concomitant]
     Active Substance: ROSUVASTATIN
     Indication: Hyperlipidaemia
     Dosage: 10 MILLIGRAM, QD
     Route: 048
  12. WARFARIN [Concomitant]
     Active Substance: WARFARIN
     Indication: Thrombosis prophylaxis
     Dosage: 6 MILLIGRAM, QD
     Route: 048
  13. TRAMADOL [Concomitant]
     Active Substance: TRAMADOL\TRAMADOL HYDROCHLORIDE
     Indication: Pain
     Dosage: 50 MILLIGRAM, PRN
     Route: 048
  14. ROBAXIN [Concomitant]
     Active Substance: METHOCARBAMOL
     Indication: Pain
     Dosage: 750 MILLIGRAM, PRN
     Route: 048
  15. LEVOTHYROXINE [Concomitant]
     Active Substance: LEVOTHYROXINE\LEVOTHYROXINE SODIUM
     Indication: Hypothyroidism
     Dosage: 100 MICROGRAM, QD
     Route: 048
  16. FEXOFENADINE [Concomitant]
     Active Substance: FEXOFENADINE HYDROCHLORIDE
     Indication: Product used for unknown indication
     Dosage: 180 MILLIGRAM, QD
     Route: 048
  17. VITAMIN B12 [Concomitant]
     Active Substance: CYANOCOBALAMIN
     Indication: Product used for unknown indication
     Dosage: 1000 MICROGRAM, QD
     Route: 048
  18. VITAMIN D3 [Concomitant]
     Active Substance: CHOLECALCIFEROL
     Indication: Product used for unknown indication
     Dosage: 50 MICROGRAM, QD
     Route: 048

REACTIONS (8)
  - Myocardial infarction [Recovering/Resolving]
  - Malaise [Recovered/Resolved]
  - Pyrexia [Recovered/Resolved]
  - Oedema peripheral [Recovered/Resolved]
  - Chills [Recovered/Resolved]
  - Abdominal pain upper [Recovered/Resolved]
  - Asthenia [Recovered/Resolved]
  - Delirium [Recovered/Resolved]

NARRATIVE: CASE EVENT DATE: 20220701
